FAERS Safety Report 23666313 (Version 3)
Quarter: 2024Q2

REPORT INFORMATION
  Report Type: Spontaneous
  Country: NL (occurrence: NL)
  Receive Date: 20240324
  Receipt Date: 20240501
  Transmission Date: 20240716
  Serious: Yes (Hospitalization, Other)
  Sender: FDA-Public Use
  Company Number: NL-TAKEDADE-THQ2009A02907

PATIENT
  Age: 58 Year
  Sex: Male

DRUGS (19)
  1. LANSOPRAZOLE [Suspect]
     Active Substance: LANSOPRAZOLE
     Indication: Abdominal pain upper
     Dosage: UNK
     Route: 048
  2. LANSOPRAZOLE [Suspect]
     Active Substance: LANSOPRAZOLE
     Indication: Abdominal pain upper
     Dosage: UNK
     Route: 065
     Dates: start: 2008
  3. LANSOPRAZOLE [Suspect]
     Active Substance: LANSOPRAZOLE
     Indication: Abdominal pain upper
     Dosage: UNK
     Route: 065
     Dates: start: 2008
  4. LANSOPRAZOLE [Suspect]
     Active Substance: LANSOPRAZOLE
     Indication: Abdominal pain upper
     Route: 065
     Dates: start: 2008
  5. PANTOZOL [Suspect]
     Active Substance: PANTOPRAZOLE SODIUM
     Indication: Abdominal pain upper
     Dosage: ENTERIC COATED TABLET
     Route: 048
  6. OMEPRAZOLE [Suspect]
     Active Substance: OMEPRAZOLE
     Indication: Abdominal pain upper
     Dosage: DOSAGE TEXT: 40 MILLIGRAM, QD
     Route: 048
  7. OMEPRAZOLE [Suspect]
     Active Substance: OMEPRAZOLE
     Indication: Abdominal pain upper
     Dosage: 40 MILLIGRAM
     Route: 048
  8. CAPTOPRIL [Concomitant]
     Active Substance: CAPTOPRIL
     Indication: Product used for unknown indication
     Dosage: UNK
  9. CAPTOPRIL [Concomitant]
     Active Substance: CAPTOPRIL
     Indication: Product used for unknown indication
     Dosage: UNK
  10. CAPTOPRIL [Concomitant]
     Active Substance: CAPTOPRIL
     Indication: Product used for unknown indication
     Dosage: UNK
  11. CAPTOPRIL [Concomitant]
     Active Substance: CAPTOPRIL
     Indication: Product used for unknown indication
  12. CAPTOPRIL [Concomitant]
     Active Substance: CAPTOPRIL
     Indication: Product used for unknown indication
     Dosage: DOSAGE TEXT: UNK
  13. RANITIDINE [Concomitant]
     Active Substance: RANITIDINE
     Indication: Abdominal pain upper
     Dosage: UNK
  14. RANITIDINE [Concomitant]
     Active Substance: RANITIDINE
     Indication: Abdominal pain upper
     Dosage: UNK
     Route: 065
  15. RANITIDINE [Concomitant]
     Active Substance: RANITIDINE
     Indication: Abdominal pain upper
     Dosage: UNK
     Route: 065
  16. RANITIDINE [Concomitant]
     Active Substance: RANITIDINE
     Indication: Abdominal pain upper
     Route: 065
  17. SIMVASTATIN [Concomitant]
     Active Substance: SIMVASTATIN
     Indication: Product used for unknown indication
     Dosage: UNK
  18. SIMVASTATIN [Concomitant]
     Active Substance: SIMVASTATIN
     Indication: Product used for unknown indication
     Dosage: UNK
  19. SIMVASTATIN [Concomitant]
     Active Substance: SIMVASTATIN
     Indication: Product used for unknown indication
     Dosage: UNK

REACTIONS (8)
  - Hypomagnesaemia [Unknown]
  - Blood parathyroid hormone decreased [Unknown]
  - Syncope [Unknown]
  - Muscle spasms [Recovered/Resolved]
  - Loss of consciousness [Unknown]
  - Hypokalaemia [Unknown]
  - Hypocalcaemia [Unknown]
  - Seizure [Unknown]

NARRATIVE: CASE EVENT DATE: 20070705
